FAERS Safety Report 18594047 (Version 1)
Quarter: 2020Q4

REPORT INFORMATION
  Report Type: Spontaneous
  Country: US (occurrence: US)
  Receive Date: 20201208
  Receipt Date: 20201208
  Transmission Date: 20210114
  Serious: No
  Sender: FDA-Public Use
  Company Number: None

PATIENT
  Age: 48 Year
  Sex: Female
  Weight: 58.79 kg

DRUGS (8)
  1. BUPROPRION [Suspect]
     Active Substance: BUPROPION
  2. GABAPENTIN. [Suspect]
     Active Substance: GABAPENTIN
  3. REMERON [Suspect]
     Active Substance: MIRTAZAPINE
  4. SEROQUEL [Suspect]
     Active Substance: QUETIAPINE FUMARATE
  5. DEXTROAMPHETAMINE. [Suspect]
     Active Substance: DEXTROAMPHETAMINE
     Indication: ATTENTION DEFICIT HYPERACTIVITY DISORDER
     Route: 048
     Dates: start: 20201003, end: 20201127
  6. PRAZOSIN. [Suspect]
     Active Substance: PRAZOSIN
  7. NALTREXONE [Suspect]
     Active Substance: NALTREXONE
  8. ADDERALL [Suspect]
     Active Substance: AMPHETAMINE ASPARTATE\AMPHETAMINE SULFATE\DEXTROAMPHETAMINE SACCHARATE\DEXTROAMPHETAMINE SULFATE

REACTIONS (5)
  - Disturbance in attention [None]
  - Educational problem [None]
  - Product quality issue [None]
  - Manufacturing issue [None]
  - Headache [None]

NARRATIVE: CASE EVENT DATE: 20201003
